FAERS Safety Report 19465173 (Version 1)
Quarter: 2021Q2

REPORT INFORMATION
  Report Type: Spontaneous
  Country: US (occurrence: US)
  Receive Date: 20210627
  Receipt Date: 20210627
  Transmission Date: 20210717
  Serious: No
  Sender: FDA-Public Use
  Company Number: US-ELI_LILLY_AND_COMPANY-US202106012219

PATIENT
  Sex: Female
  Weight: 77.1 kg

DRUGS (2)
  1. TADALAFIL. [Suspect]
     Active Substance: TADALAFIL
     Indication: PRODUCT USED FOR UNKNOWN INDICATION
     Dosage: UNK, UNKNOWN
     Route: 065
  2. TYVASO [Suspect]
     Active Substance: TREPROSTINIL
     Indication: PULMONARY ARTERIAL HYPERTENSION
     Dosage: 20 DOSAGE FORM, QID
     Route: 055
     Dates: start: 20121015

REACTIONS (3)
  - Arthralgia [Unknown]
  - Myalgia [Unknown]
  - Sleep disorder due to general medical condition, insomnia type [Unknown]
